FAERS Safety Report 12110603 (Version 1)
Quarter: 2016Q1

REPORT INFORMATION
  Report Type: Spontaneous
  Country: US (occurrence: US)
  Receive Date: 20160224
  Receipt Date: 20160224
  Transmission Date: 20160526
  Serious: No
  Sender: FDA-Public Use
  Company Number: US-APOTEX-2016AP006257

PATIENT
  Sex: Female

DRUGS (1)
  1. BUDESONIDE NASAL SPRAY [Suspect]
     Active Substance: BUDESONIDE
     Indication: PRODUCT USED FOR UNKNOWN INDICATION
     Dosage: 1 SPRAY EACH NOSTRIL, SINGLE
     Route: 045

REACTIONS (3)
  - Epistaxis [Unknown]
  - Blood pressure increased [Unknown]
  - Drug ineffective [Unknown]
